FAERS Safety Report 9099142 (Version 1)
Quarter: 2013Q1

REPORT INFORMATION
  Report Type: Spontaneous
  Country: GB (occurrence: GB)
  Receive Date: 20130213
  Receipt Date: 20130213
  Transmission Date: 20140127
  Serious: Yes (Hospitalization)
  Sender: FDA-Public Use
  Company Number: GB-ELI_LILLY_AND_COMPANY-GB201302001807

PATIENT
  Sex: Female

DRUGS (1)
  1. HUMULIN 30% REGULAR, 70% NPH [Suspect]
     Dosage: UNK
     Dates: start: 2011

REACTIONS (1)
  - Skin ulcer [Unknown]
